FAERS Safety Report 8307856-0 (Version None)
Quarter: 2012Q2

REPORT INFORMATION
  Report Type: 
  Country: None (occurrence: None)
  Receive Date: 20120424
  Receipt Date: 20120418
  Transmission Date: 20120825
  Serious: No
  Sender: FDA-Public Use
  Company Number: JP-TEVA-2011004958

PATIENT
  Age: 69 Year
  Sex: Female

DRUGS (12)
  1. BENDAMUSTINE HCL [Suspect]
     Route: 042
     Dates: start: 20110803, end: 20110804
  2. BENDAMUSTINE HCL [Suspect]
     Route: 042
     Dates: start: 20110831, end: 20110901
  3. BENDAMUSTINE HCL [Suspect]
     Route: 042
     Dates: start: 20110928, end: 20110929
  4. RITUXIMAB [Concomitant]
     Route: 042
     Dates: start: 20110802
  5. RITUXIMAB [Concomitant]
     Route: 042
     Dates: start: 20110830
  6. BENDAMUSTINE HCL [Suspect]
     Indication: B-CELL LYMPHOMA
     Route: 042
     Dates: start: 20110705, end: 20110706
  7. RITUXIMAB [Concomitant]
     Route: 042
     Dates: start: 20111122
  8. BENDAMUSTINE HCL [Suspect]
     Route: 042
     Dates: start: 20111207, end: 20111208
  9. RITUXIMAB [Concomitant]
     Route: 042
     Dates: start: 20111025
  10. BENDAMUSTINE HCL [Suspect]
     Route: 042
     Dates: start: 20111026, end: 20111027
  11. RITUXIMAB [Concomitant]
     Route: 042
     Dates: start: 20110704
  12. RITUXIMAB [Concomitant]
     Route: 042
     Dates: start: 20110927

REACTIONS (1)
  - NEUTROPHIL COUNT DECREASED [None]
